FAERS Safety Report 8791808 (Version 6)
Quarter: 2014Q4

REPORT INFORMATION
  Report Type: Spontaneous
  Country: US (occurrence: US)
  Receive Date: 20120918
  Receipt Date: 20141016
  Transmission Date: 20150529
  Serious: Yes (Hospitalization, Other)
  Sender: FDA-Public Use
  Company Number: US-009507513-1209USA003329

PATIENT
  Sex: Female

DRUGS (2)
  1. FOSAMAX [Suspect]
     Active Substance: ALENDRONATE SODIUM
     Indication: OSTEOPOROSIS
     Dosage: 70 MG, UNK
     Route: 048
     Dates: start: 20050224, end: 20080204
  2. ALENDRONATE SODIUM. [Suspect]
     Active Substance: ALENDRONATE SODIUM
     Indication: OSTEOPOROSIS
     Dosage: 70 MG, UNK
     Route: 048
     Dates: start: 20080304, end: 20101031

REACTIONS (18)
  - Cystitis [Unknown]
  - Surgery [Unknown]
  - Low turnover osteopathy [Unknown]
  - Pneumonitis [Unknown]
  - Joint range of motion decreased [Unknown]
  - Tenderness [Unknown]
  - Femur fracture [Unknown]
  - Pneumonia aspiration [Unknown]
  - Rotator cuff syndrome [Unknown]
  - Diabetes mellitus [Unknown]
  - Ecchymosis [Unknown]
  - Aortic arteriosclerosis [Unknown]
  - Aortic stenosis [Unknown]
  - Sinus bradycardia [Unknown]
  - Asthenia [Unknown]
  - Open reduction of fracture [Unknown]
  - Osteoarthritis [Unknown]
  - Hysterectomy [Unknown]

NARRATIVE: CASE EVENT DATE: 201008
